FAERS Safety Report 10197318 (Version 1)
Quarter: 2014Q2

REPORT INFORMATION
  Report Type: Report from Study
  Country: CA (occurrence: CA)
  Receive Date: 20140527
  Receipt Date: 20140527
  Transmission Date: 20141212
  Serious: Yes (Hospitalization)
  Sender: FDA-Public Use
  Company Number: CA-JNJFOC-20140514079

PATIENT
  Sex: Male
  Weight: 74 kg

DRUGS (4)
  1. REMICADE [Suspect]
     Indication: COLITIS ULCERATIVE
     Route: 042
     Dates: start: 20140314
  2. PREDNISONE [Concomitant]
     Dosage: 6 TABLETS
     Route: 048
  3. CALCIUM [Concomitant]
     Dosage: 1 TAB
     Route: 048
  4. VITAMIN D [Concomitant]
     Dosage: 1 TAB
     Route: 048

REACTIONS (5)
  - Rectal haemorrhage [Recovered/Resolved]
  - Gastrointestinal obstruction [Recovered/Resolved]
  - Muscle atrophy [Recovered/Resolved]
  - Bone loss [Recovered/Resolved]
  - Fluid overload [Recovered/Resolved]
